FAERS Safety Report 4390366-3 (Version None)
Quarter: 2004Q2

REPORT INFORMATION
  Report Type: 
  Country: None (occurrence: None)
  Receive Date: 20040628
  Receipt Date: 20040614
  Transmission Date: 20050107
  Serious: Yes (Other)
  Sender: FDA-Public Use
  Company Number: 2003025958

PATIENT
  Sex: Female
  Weight: 48.5349 kg

DRUGS (5)
  1. DILANTIN [Suspect]
     Indication: CONVULSION
     Dosage: ORAL
     Route: 048
     Dates: start: 20010101
  2. ALL OTHER NON-THERAPEUTIC PRODUCTS (ALL OTHER NON-THERAPEUTIC PRODUCTS [Suspect]
     Indication: ILL-DEFINED DISORDER
     Dosage: ORAL
     Route: 048
  3. CANDESARTAN CILEXITIL (CANDESARTAN CILEXITIL) [Concomitant]
  4. MULTIVITAMIN [Concomitant]
  5. POTASSIUM CHLORIDE [Concomitant]

REACTIONS (7)
  - ANTICONVULSANT DRUG LEVEL DECREASED [None]
  - ANTICONVULSANT DRUG LEVEL INCREASED [None]
  - BLOOD POTASSIUM DECREASED [None]
  - FATIGUE [None]
  - MEDICATION ERROR [None]
  - OESOPHAGEAL ULCER [None]
  - SOMNOLENCE [None]
